FAERS Safety Report 8505507-3 (Version None)
Quarter: 2012Q2

REPORT INFORMATION
  Report Type: 
  Country: None (occurrence: None)
  Receive Date: 20120405
  Receipt Date: 20090928
  Transmission Date: 20120825
  Serious: Yes (Other)
  Sender: FDA-Public Use
  Company Number: PHEH2009US13025

PATIENT
  Age: 64 Year
  Sex: Female

DRUGS (9)
  1. IBUPROFEN (ADVIL) [Suspect]
  2. DEPAKOTE [Concomitant]
  3. VICODIN [Suspect]
  4. PREMPRO [Concomitant]
  5. VITAMIN D [Suspect]
     Dosage: 50000IU
     Dates: end: 20090901
  6. CALCIUM CARBONATE [Concomitant]
  7. B-COMPLEX ^KRKA^ (VITAMIN B NOS) [Concomitant]
  8. RECLAST [Suspect]
     Dosage: , INFUSION
     Dates: start: 20090922
  9. ACETAMINOPHEN [Suspect]

REACTIONS (12)
  - FEELING ABNORMAL [None]
  - INJECTION SITE SWELLING [None]
  - CHILLS [None]
  - ABDOMINAL PAIN [None]
  - HYPOKINESIA [None]
  - BONE PAIN [None]
  - VOMITING [None]
  - HEADACHE [None]
  - CHEST PAIN [None]
  - MYALGIA [None]
  - DIZZINESS [None]
  - MALAISE [None]
